FAERS Safety Report 20541301 (Version 1)
Quarter: 2022Q1

REPORT INFORMATION
  Report Type: Spontaneous
  Country: US (occurrence: US)
  Receive Date: 20220302
  Receipt Date: 20220302
  Transmission Date: 20220424
  Serious: No
  Sender: FDA-Public Use
  Company Number: US-BRISTOL-MYERS SQUIBB COMPANY-BMS-2021-139064

PATIENT
  Age: 84 Year
  Sex: Female
  Weight: 74.6 kg

DRUGS (7)
  1. ELIQUIS [Suspect]
     Active Substance: APIXABAN
     Indication: Cerebrovascular accident prophylaxis
     Dosage: 2.5 MILLIGRAM, BID
     Route: 048
  2. ELIQUIS [Suspect]
     Active Substance: APIXABAN
     Dosage: 2.5 MILLIGRAM, QID
     Route: 048
  3. COENZYME Q10 [Concomitant]
     Active Substance: DIETARY SUPPLEMENT\UBIDECARENONE
     Indication: Product used for unknown indication
     Dosage: 100 MILLIGRAM, QD
     Route: 048
  4. ASCORBIC ACID\CRANBERRY [Concomitant]
     Active Substance: ASCORBIC ACID\CRANBERRY
     Indication: Product used for unknown indication
     Dosage: 1 DOSAGE FORM, QD
     Route: 048
  5. FLAXSEED [Concomitant]
     Active Substance: FLAX SEED
     Indication: Product used for unknown indication
     Dosage: 140 MILLIGRAM, QD
     Route: 048
  6. GLUCOSAMINE [Concomitant]
     Active Substance: GLUCOSAMINE
     Indication: Product used for unknown indication
     Dosage: 700 MILLIGRAM, QD
     Route: 048
  7. HERBALS\VITIS VINIFERA SEED [Concomitant]
     Active Substance: HERBALS\VITIS VINIFERA SEED
     Indication: Product used for unknown indication
     Dosage: 75 MILLIGRAM, QD
     Route: 048

REACTIONS (4)
  - Intentional product misuse [Unknown]
  - Cervical radiculopathy [Unknown]
  - Chest pain [Unknown]
  - Hyperglycaemia [Unknown]
